FAERS Safety Report 7594311-9 (Version None)
Quarter: 2011Q3

REPORT INFORMATION
  Report Type: 
  Country: None (occurrence: None)
  Receive Date: 20110706
  Receipt Date: 20110627
  Transmission Date: 20111222
  Serious: Yes (Hospitalization)
  Sender: FDA-Public Use
  Company Number: US-ASTRAZENECA-2011SE38867

PATIENT
  Age: 80 Year
  Sex: Male

DRUGS (4)
  1. DILTIAZEM [Concomitant]
  2. SYMBICORT [Suspect]
     Indication: ASTHMA
     Dosage: 160/4.5 ONE PUFF IN THE MORNING AND TWO AT NIGHT MCG (BID)
     Route: 055
  3. DIGOXON [Concomitant]
  4. WARFARIN SODIUM [Concomitant]

REACTIONS (2)
  - DYSPNOEA [None]
  - FALL [None]
